FAERS Safety Report 15342083 (Version 2)
Quarter: 2018Q4

REPORT INFORMATION
  Report Type: Spontaneous
  Country: US (occurrence: US)
  Receive Date: 20180902
  Receipt Date: 20181029
  Transmission Date: 20190204
  Serious: Yes (Other)
  Sender: FDA-Public Use
  Company Number: US-PRINSTON PHARMACEUTICAL INC.-2018PRN01126

PATIENT
  Sex: Female
  Weight: 89.34 kg

DRUGS (4)
  1. UNSPECIFIED WATER PILL [Concomitant]
  2. UNSPECIFIED INSULIN [Concomitant]
     Active Substance: INSULIN NOS
  3. METOPROLOL. [Concomitant]
     Active Substance: METOPROLOL
  4. VALSARTAN. [Suspect]
     Active Substance: VALSARTAN
     Indication: HYPERTENSION
     Dosage: 320 MG, 1X/DAY
     Route: 048
     Dates: start: 2011, end: 201808

REACTIONS (2)
  - Colon cancer [Recovered/Resolved]
  - Unevaluable event [Recovered/Resolved]

NARRATIVE: CASE EVENT DATE: 2016
